FAERS Safety Report 6319436-7 (Version None)
Quarter: 2009Q3

REPORT INFORMATION
  Report Type: 
  Country: None (occurrence: None)
  Receive Date: 20090822
  Receipt Date: 20080925
  Transmission Date: 20100115
  Serious: No
  Sender: FDA-Public Use
  Company Number: US-ABBOTT-08P-163-0474835-00

PATIENT
  Sex: Male

DRUGS (3)
  1. NIASPAN [Suspect]
     Indication: HIGH DENSITY LIPOPROTEIN DECREASED
     Dates: start: 20061115
  2. LAMIVUDINE + ZIDOVUDINE [Concomitant]
     Indication: DRUG USE FOR UNKNOWN INDICATION
  3. NELFINAVIR MESILATE [Concomitant]
     Indication: DRUG USE FOR UNKNOWN INDICATION

REACTIONS (5)
  - DIARRHOEA [None]
  - JOINT SWELLING [None]
  - MEDICATION RESIDUE [None]
  - OROPHARYNGEAL PAIN [None]
  - RESPIRATORY TRACT CONGESTION [None]
